FAERS Safety Report 9007283 (Version 1)
Quarter: 2013Q1

REPORT INFORMATION
  Report Type: Spontaneous
  Country: NL (occurrence: NL)
  Receive Date: 20130110
  Receipt Date: 20130110
  Transmission Date: 20140127
  Serious: Yes (Death)
  Sender: FDA-Public Use
  Company Number: NL-BAXTER-2012BAX027224

PATIENT
  Sex: Male

DRUGS (6)
  1. EXTRANEAL [Suspect]
     Indication: RENAL FAILURE
     Route: 033
  2. EXTRANEAL [Suspect]
     Indication: PERITONEAL DIALYSIS
  3. DIANEAL PD4 GLUCOSE 1,36 % / 13,6 MG/ML [Suspect]
     Indication: RENAL FAILURE
     Route: 033
  4. DIANEAL PD4 GLUCOSE 1,36 % / 13,6 MG/ML [Suspect]
     Indication: PERITONEAL DIALYSIS
  5. DIANEAL PD4 GLUCOSE 2.27% W/V / 22.7 MG/ML [Suspect]
     Indication: RENAL FAILURE
     Route: 033
  6. DIANEAL PD4 GLUCOSE 2.27% W/V / 22.7 MG/ML [Suspect]
     Indication: PERITONEAL DIALYSIS

REACTIONS (3)
  - Cardiac disorder [Fatal]
  - Angiopathy [Fatal]
  - Post procedural sepsis [Fatal]
